FAERS Safety Report 4380995-5 (Version None)
Quarter: 2004Q2

REPORT INFORMATION
  Report Type: 
  Country: None (occurrence: None)
  Receive Date: 20040614
  Receipt Date: 20040602
  Transmission Date: 20050107
  Serious: Yes (Hospitalization)
  Sender: FDA-Public Use
  Company Number: WAES 0406GBR00038

PATIENT
  Sex: Female

DRUGS (4)
  1. VIOXX [Suspect]
     Indication: RHEUMATOID ARTHRITIS
     Dosage: 25 MG/BID
     Route: 048
     Dates: end: 20031110
  2. ASPIRIN [Suspect]
     Indication: MYOCARDIAL ISCHAEMIA
     Dosage: 75 MG/UNK
     Route: 048
     Dates: end: 20031110
  3. BLINDED THERAPY [Concomitant]
  4. DILTIAZEM HYDROCHLORIDE [Concomitant]

REACTIONS (4)
  - GASTRITIS EROSIVE [None]
  - HAEMATEMESIS [None]
  - HAEMOGLOBIN DECREASED [None]
  - MYOCARDIAL INFARCTION [None]
